FAERS Safety Report 5917474-7 (Version None)
Quarter: 2008Q4

REPORT INFORMATION
  Report Type: 
  Country: None (occurrence: None)
  Receive Date: 20081009
  Receipt Date: 20081009
  Transmission Date: 20090506
  Serious: Yes (Hospitalization)
  Sender: FDA-Public Use
  Company Number: None

PATIENT
  Age: 73 Year
  Sex: Female
  Weight: 66 kg

DRUGS (12)
  1. LEXAPRO [Suspect]
     Indication: DEPRESSION
     Dosage: 10 MG DAILY PO COUPLE OF YEARS
     Route: 048
  2. INSULIN GLARGINE [Concomitant]
  3. PRANDIN [Concomitant]
  4. GLIMEPIRIDE [Concomitant]
  5. PLAVIX [Concomitant]
  6. DIOVAN [Concomitant]
  7. LABETALOL HCL [Concomitant]
  8. NORVASC [Concomitant]
  9. FOSAMAX [Concomitant]
  10. METFORMIN HYDROCHLORIDE [Concomitant]
  11. ZOCOR [Concomitant]
  12. LORAZEPAM [Concomitant]

REACTIONS (2)
  - HYPONATRAEMIA [None]
  - PAIN [None]
